FAERS Safety Report 8217599-X (Version None)
Quarter: 2012Q1

REPORT INFORMATION
  Report Type: 
  Country: None (occurrence: None)
  Receive Date: 20120319
  Receipt Date: 20120319
  Transmission Date: 20120608
  Serious: Yes (Other)
  Sender: FDA-Public Use
  Company Number: None

PATIENT
  Age: 33 Year
  Sex: Female
  Weight: 86.182 kg

DRUGS (2)
  1. MICONAZOLE NITRATE [Suspect]
     Indication: VAGINAL INFECTION
     Dosage: 1200MG
     Route: 067
     Dates: start: 20120312, end: 20120312
  2. MICONAZOLE NITRATE [Suspect]
     Indication: VULVITIS
     Dosage: 1200MG
     Route: 067
     Dates: start: 20120312, end: 20120312

REACTIONS (1)
  - CHEMICAL INJURY [None]
